FAERS Safety Report 5927453-1 (Version None)
Quarter: 2008Q4

REPORT INFORMATION
  Report Type: 
  Country: None (occurrence: None)
  Receive Date: 20081021
  Receipt Date: 20081021
  Transmission Date: 20090506
  Serious: No
  Sender: FDA-Public Use
  Company Number: None

PATIENT
  Age: 14 Year
  Sex: Male
  Weight: 54.3 kg

DRUGS (2)
  1. VIVAGLOBIN [Suspect]
     Indication: IMMUNODEFICIENCY
     Dosage: 10.08GM EVERY WEEK SQ
     Route: 058
     Dates: start: 20080929, end: 20081020
  2. VIVAGLOBIN [Suspect]

REACTIONS (1)
  - SWELLING [None]
